FAERS Safety Report 8969182 (Version 1)
Quarter: 2012Q4

REPORT INFORMATION
  Report Type: 
  Country: US (occurrence: US)
  Receive Date: 20121218
  Receipt Date: 20121218
  Transmission Date: 20130627
  Serious: No
  Sender: FDA-Public Use
  Company Number: US-009507513-1212USA000599

PATIENT
  Age: 24 Year
  Sex: Male

DRUGS (1)
  1. ERTAPENEM SODIUM [Suspect]
     Indication: INFECTION
     Dosage: 6 weeks
     Route: 042

REACTIONS (1)
  - Drug ineffective [Unknown]
